FAERS Safety Report 10236710 (Version 1)
Quarter: 2014Q2

REPORT INFORMATION
  Report Type: Spontaneous
  Country: US (occurrence: US)
  Receive Date: 20140613
  Receipt Date: 20140613
  Transmission Date: 20141212
  Serious: Yes (Hospitalization)
  Sender: FDA-Public Use
  Company Number: US-GLAXOSMITHKLINE-A1076040A

PATIENT
  Age: 58 Year
  Sex: Male

DRUGS (9)
  1. LOVAZA [Suspect]
     Indication: BLOOD TRIGLYCERIDES INCREASED
     Dosage: 2CAP TWICE PER DAY
     Route: 048
     Dates: start: 200902
  2. CLOPIDOGREL [Suspect]
     Indication: STENT PLACEMENT
     Dosage: 75MG PER DAY
     Route: 065
     Dates: start: 200902
  3. ATORVASTATIN [Concomitant]
  4. ISENTRESS [Concomitant]
  5. INTELENCE [Concomitant]
  6. PLAVIX [Concomitant]
  7. GLIPIZID [Concomitant]
  8. METFORMIN [Concomitant]
  9. FENOFIBRATE [Concomitant]

REACTIONS (3)
  - Gastric ulcer haemorrhage [Recovered/Resolved]
  - Dizziness [Recovered/Resolved]
  - Transfusion [Recovered/Resolved]
